FAERS Safety Report 5607914-5 (Version None)
Quarter: 2008Q1

REPORT INFORMATION
  Report Type: 
  Country: None (occurrence: None)
  Receive Date: 20080130
  Receipt Date: 20080116
  Transmission Date: 20080703
  Serious: Yes (Death)
  Sender: FDA-Public Use
  Company Number: CA-JNJFOC-20061202564

PATIENT
  Age: 4 Year
  Sex: Male

DRUGS (6)
  1. FENTANYL [Suspect]
     Indication: DRUG USE FOR UNKNOWN INDICATION
     Route: 065
  2. MORPHINE [Concomitant]
     Route: 065
  3. ACETAMINOPHEN [Concomitant]
     Route: 065
  4. BUPIVACAINE [Concomitant]
     Route: 065
  5. DIAZEPAM [Concomitant]
     Route: 065
  6. HYDROCODONE BITARTRATE [Concomitant]
     Route: 065

REACTIONS (3)
  - BRONCHOPNEUMONIA [None]
  - ELECTROMECHANICAL DISSOCIATION [None]
  - PULMONARY OEDEMA [None]
